FAERS Safety Report 18827719 (Version 1)
Quarter: 2021Q1

REPORT INFORMATION
  Report Type: Other
  Country: IT (occurrence: IT)
  Receive Date: 20210202
  Receipt Date: 20210202
  Transmission Date: 20210419
  Serious: Yes (Hospitalization)
  Sender: FDA-Public Use
  Company Number: IT-CELLTRION INC.-2021IT000999

PATIENT

DRUGS (10)
  1. PANTOPRAZOLE [Concomitant]
     Active Substance: PANTOPRAZOLE
     Dosage: 1 DF, DAILY
     Route: 048
  2. ATORVASTATIN [Concomitant]
     Active Substance: ATORVASTATIN
     Dosage: 1 MG, DAILY
     Route: 048
  3. BISOPROLOL FUMARATE. [Concomitant]
     Active Substance: BISOPROLOL FUMARATE
     Indication: HYPERTENSION
     Dosage: 1 DF, DAILY
     Route: 048
  4. ACETYLSALICYLIC ACID [Concomitant]
     Active Substance: ASPIRIN
     Indication: ANTIPLATELET THERAPY
     Dosage: 100 MG, DAILY
     Route: 048
  5. CALCIFEDIOL [Concomitant]
     Active Substance: CALCIFEDIOL
     Dosage: 1 DF, DAILY
     Route: 048
  6. RITUXIMAB (UNKNOWN) [Suspect]
     Active Substance: RITUXIMAB
     Indication: PACHYMENINGITIS
     Dosage: 1000 MG, CYCLIC
     Route: 042
     Dates: start: 20191030, end: 20191030
  7. PREDNISONE. [Concomitant]
     Active Substance: PREDNISONE
     Indication: PACHYMENINGITIS
     Dosage: 20 MG, DAILY
     Route: 048
  8. LAMIVUDINE. [Concomitant]
     Active Substance: LAMIVUDINE
     Dosage: 1 DF, DAILY
     Route: 048
  9. LEVOTHYROXINE. [Concomitant]
     Active Substance: LEVOTHYROXINE
     Dosage: 1 DF, DAILY
     Route: 048
  10. ALPRAZOLAM. [Concomitant]
     Active Substance: ALPRAZOLAM
     Dosage: 1 DF, DAILY

REACTIONS (6)
  - Anaphylactic reaction [Recovering/Resolving]
  - Erythema [Recovering/Resolving]
  - Loss of consciousness [Recovering/Resolving]
  - Urticaria [Recovering/Resolving]
  - Disorientation [Recovering/Resolving]
  - Off label use [Unknown]

NARRATIVE: CASE EVENT DATE: 20191030
